FAERS Safety Report 8891105 (Version 2)
Quarter: 2012Q4

REPORT INFORMATION
  Report Type: 
  Country: TR (occurrence: TR)
  Receive Date: 20121107
  Receipt Date: 20121115
  Transmission Date: 20130627
  Serious: No
  Sender: FDA-Public Use
  Company Number: TR-BAYER-2012-114999

PATIENT
  Age: 42 Year
  Sex: Female
  Weight: 75 kg

DRUGS (2)
  1. BETAFERON [Suspect]
     Indication: MS
     Dosage: UNK
     Route: 058
     Dates: start: 20120919
  2. FOSAVANCE [Concomitant]
     Dosage: UNK
     Route: 048

REACTIONS (1)
  - Menstrual disorder [None]
